FAERS Safety Report 8077400-4 (Version None)
Quarter: 2012Q1

REPORT INFORMATION
  Report Type: 
  Country: None (occurrence: None)
  Receive Date: 20120127
  Receipt Date: 20120123
  Transmission Date: 20120608
  Serious: Yes (Other)
  Sender: FDA-Public Use
  Company Number: DE-ELI_LILLY_AND_COMPANY-DE201201006241

PATIENT
  Age: 74 Year
  Sex: Male

DRUGS (9)
  1. MAGNESIUM [Concomitant]
     Dosage: UNK
  2. HUMALOG [Suspect]
     Indication: TYPE 2 DIABETES MELLITUS
     Dosage: UNK, QD
     Route: 058
     Dates: start: 20030101
  3. ALLOPURINOL [Concomitant]
     Dosage: 100 MG, UNKNOWN
  4. LERCANIDIPINE [Concomitant]
     Dosage: 150 MG, BID
  5. LANTUS [Concomitant]
     Dosage: UNK
  6. CALCIUM [Concomitant]
     Dosage: UNK
  7. KAVA [Concomitant]
     Dosage: 75 MG, BID
  8. HUMALOG [Suspect]
     Dosage: 60 DF, SINGLE
     Dates: start: 20120120, end: 20120120
  9. BISOPROLOL FUMARATE [Concomitant]
     Dosage: 5 MG, EACH MORNING

REACTIONS (2)
  - BACK PAIN [None]
  - BLOOD GLUCOSE INCREASED [None]
